FAERS Safety Report 4922473-8 (Version None)
Quarter: 2006Q1

REPORT INFORMATION
  Report Type: 
  Country: None (occurrence: None)
  Receive Date: 20060224
  Receipt Date: 20060216
  Transmission Date: 20060701
  Serious: Yes (Hospitalization)
  Sender: FDA-Public Use
  Company Number: 2006CG00339

PATIENT
  Age: 77 Year
  Sex: Female
  Weight: 58 kg

DRUGS (4)
  1. NEXIUM [Suspect]
     Route: 048
     Dates: end: 20060105
  2. TAVANIC [Suspect]
     Route: 048
     Dates: start: 20051224, end: 20051226
  3. TARDYFERON [Suspect]
     Route: 048
  4. CORTANCYL [Suspect]
     Route: 048

REACTIONS (1)
  - NEUTROPENIA [None]
